FAERS Safety Report 10674320 (Version 1)
Quarter: 2014Q4

REPORT INFORMATION
  Report Type: Spontaneous
  Country: US (occurrence: None)
  Receive Date: 20141209
  Receipt Date: 20141209
  Transmission Date: 20150529
  Serious: Yes (Hospitalization)
  Sender: FDA-Public Use
  Company Number: 421307

PATIENT
  Age: 54 Year
  Sex: Female
  Weight: 68.6 kg

DRUGS (2)
  1. LANTUS (INSULIN GALARGINE) [Concomitant]
  2. NOVOLOG [Suspect]
     Active Substance: INSULIN ASPART
     Indication: TYPE 1 DIABETES MELLITUS
     Dosage: 2 UNITS PER 10 GM OF CARBOHYDRATES, SUBCUTANEOUS
     Route: 058
     Dates: start: 1984

REACTIONS (2)
  - Hypoglycaemic seizure [None]
  - Blood glucose increased [None]

NARRATIVE: CASE EVENT DATE: 20140824
